FAERS Safety Report 17293572 (Version 2)
Quarter: 2020Q1

REPORT INFORMATION
  Report Type: Spontaneous
  Country: US (occurrence: US)
  Receive Date: 20200121
  Receipt Date: 20200325
  Transmission Date: 20200409
  Serious: Yes (Hospitalization)
  Sender: FDA-Public Use
  Company Number: US-ALLERGAN-2001959US

PATIENT
  Sex: Male
  Weight: 104.31 kg

DRUGS (2)
  1. NORCO [Suspect]
     Active Substance: ACETAMINOPHEN\HYDROCODONE BITARTRATE
     Indication: PAIN IN EXTREMITY
     Dosage: 10MG/ 325MG, 1 TABLET EVERY 4 HOURS
     Route: 065
     Dates: start: 2014, end: 201903
  2. MORPHINE SULFATE UNK [Suspect]
     Active Substance: MORPHINE SULFATE
     Indication: PAIN IN EXTREMITY
     Dosage: 45MG OR 60MG /12 HOURS
     Route: 065
     Dates: start: 2014

REACTIONS (8)
  - Peripheral swelling [Not Recovered/Not Resolved]
  - Dysuria [Not Recovered/Not Resolved]
  - Gait disturbance [Unknown]
  - Urinary tract infection [Unknown]
  - Pain in extremity [Unknown]
  - Penile pain [Not Recovered/Not Resolved]
  - Fall [Recovered/Resolved]
  - Poisoning [Unknown]

NARRATIVE: CASE EVENT DATE: 201901
